FAERS Safety Report 7953967 (Version 2)
Quarter: 2012Q4

REPORT INFORMATION
  Report Type: Spontaneous
  Country: US (occurrence: None)
  Receive Date: 20110503
  Receipt Date: 20121128
  Transmission Date: 20130627
  Serious: Yes (Other)
  Sender: FDA-Public Use
  Company Number: AUR-APL-2011-01431

PATIENT
  Age: 53 Year
  Sex: Female

DRUGS (14)
  1. LISINOPRIL [Suspect]
  2. GLYBURIDE [Suspect]
  3. PREDNISONE [Suspect]
  4. LEVOXYL [Suspect]
  5. NICODERM CQ [Suspect]
     Indication: SMOKING CESSATION THERAPY
     Dosage: 21MG
  6. NICOTINE POLACRILEX [Suspect]
     Indication: SMOKING CESSATION THERAPY
     Dosage: 4 MG
  7. ZOFRAN [Suspect]
  8. SYMBICORT [Suspect]
  9. PLAVIX [Suspect]
  10. ACIPHEX [Suspect]
  11. FLEXERIL [Suspect]
  12. PROZAC [Suspect]
  13. ATIVAN [Suspect]
  14. LITHIUM CARBONATE [Suspect]

REACTIONS (5)
  - HALLUCINATION [None]
  - NIGHTMARE [None]
  - DRUG ADMINISTRATION ERROR [None]
  - DRUG INTERACTION [None]
  - DYSPEPSIA [None]
